FAERS Safety Report 6438694-1 (Version None)
Quarter: 2009Q4

REPORT INFORMATION
  Report Type: 
  Country: None (occurrence: None)
  Receive Date: 20091113
  Receipt Date: 20091105
  Transmission Date: 20100525
  Serious: Yes (Hospitalization)
  Sender: FDA-Public Use
  Company Number: US-BIOGENIDEC-166538

PATIENT
  Age: 67 Year
  Sex: Female
  Weight: 56 kg

DRUGS (8)
  1. AVONEX [Suspect]
     Indication: MULTIPLE SCLEROSIS
     Route: 030
     Dates: start: 20000115, end: 20050101
  2. TENORMIN [Concomitant]
     Indication: HYPERTENSION
  3. DIOVAN [Concomitant]
     Indication: HYPERTENSION
  4. ZANTAC [Concomitant]
     Indication: GASTROOESOPHAGEAL REFLUX DISEASE
     Dates: end: 20021001
  5. PRAVACHOL [Concomitant]
     Indication: HYPERCHOLESTEROLAEMIA
     Dates: end: 20021001
  6. DIAZOXIDE [Concomitant]
     Indication: HYPERTENSION
     Dates: end: 20021001
  7. ESTRATEST [Concomitant]
     Indication: HORMONE REPLACEMENT THERAPY
  8. PROVERA [Concomitant]
     Indication: HORMONE REPLACEMENT THERAPY

REACTIONS (4)
  - ARTERIAL OCCLUSIVE DISEASE [None]
  - BASAL GANGLIA INFARCTION [None]
  - BENIGN NEOPLASM OF SPINAL CORD [None]
  - INFLUENZA LIKE ILLNESS [None]
